FAERS Safety Report 6379549-0 (Version None)
Quarter: 2009Q3

REPORT INFORMATION
  Report Type: 
  Country: None (occurrence: None)
  Receive Date: 20090923
  Receipt Date: 20090911
  Transmission Date: 20100115
  Serious: Yes (Other)
  Sender: FDA-Public Use
  Company Number: 1-19909587

PATIENT
  Age: 46 Year
  Sex: Male
  Weight: 81.6475 kg

DRUGS (6)
  1. ACETAZOLAMIDE [Suspect]
     Indication: MOUNTAIN SICKNESS ACUTE
     Dosage: 125 MG, ONCE, ORAL
     Route: 048
     Dates: start: 20090625, end: 20090625
  2. ACETAZOLAMIDE [Suspect]
     Indication: PROPHYLAXIS
     Dosage: 125 MG, ONCE, ORAL
     Route: 048
     Dates: start: 20090625, end: 20090625
  3. UNSPECIFIED ANTIMALARIAL MEDICATION [Concomitant]
  4. CELEBREX [Concomitant]
  5. ADVIL [Concomitant]
  6. VITAMIN E [Concomitant]

REACTIONS (5)
  - CHOLELITHIASIS [None]
  - DYSPNOEA [None]
  - HEART RATE INCREASED [None]
  - PARAESTHESIA [None]
  - SWOLLEN TONGUE [None]
